FAERS Safety Report 10847239 (Version 2)
Quarter: 2015Q2

REPORT INFORMATION
  Report Type: Spontaneous
  Country: AU (occurrence: AU)
  Receive Date: 20150220
  Receipt Date: 20150430
  Transmission Date: 20150821
  Serious: No
  Sender: FDA-Public Use
  Company Number: AU-BAUSCH-BL-2015-003161

PATIENT
  Age: 64 Year
  Sex: Female

DRUGS (2)
  1. VERTEPORFIN [Suspect]
     Active Substance: VERTEPORFIN
     Indication: CHORIORETINOPATHY
     Dosage: SHOT DAILY
     Route: 031
     Dates: start: 20141013
  2. VERTEPORFIN [Suspect]
     Active Substance: VERTEPORFIN
     Route: 031

REACTIONS (2)
  - Intentional product use issue [Not Recovered/Not Resolved]
  - Subretinal fluid [Not Recovered/Not Resolved]

NARRATIVE: CASE EVENT DATE: 201410
